FAERS Safety Report 12561012 (Version 1)
Quarter: 2016Q3

REPORT INFORMATION
  Report Type: Spontaneous
  Country: FR (occurrence: FR)
  Receive Date: 20160715
  Receipt Date: 20160715
  Transmission Date: 20161109
  Serious: Yes (Other)
  Sender: FDA-Public Use
  Company Number: FR-ABBVIE-16K-056-1674470-00

PATIENT
  Age: 0 Year
  Sex: Male
  Weight: 3.28 kg

DRUGS (1)
  1. HUMIRA [Suspect]
     Active Substance: ADALIMUMAB
     Indication: MATERNAL EXPOSURE TIMING UNSPECIFIED
     Route: 064

REACTIONS (5)
  - Foetal exposure during pregnancy [Unknown]
  - Hyperthermia [Unknown]
  - Heart rate decreased [Unknown]
  - Gastrooesophageal reflux disease [Unknown]
  - Insomnia [Unknown]

NARRATIVE: CASE EVENT DATE: 2015
